FAERS Safety Report 18991264 (Version 1)
Quarter: 2021Q1

REPORT INFORMATION
  Report Type: Spontaneous
  Country: TR (occurrence: TR)
  Receive Date: 20210310
  Receipt Date: 20210310
  Transmission Date: 20210420
  Serious: Yes (Hospitalization)
  Sender: FDA-Public Use
  Company Number: TR-INVENTIA-000466

PATIENT
  Age: 31 Year
  Sex: Female

DRUGS (3)
  1. IBUPROFEN. [Concomitant]
     Active Substance: IBUPROFEN
     Indication: PERICARDITIS
     Dosage: 200 MG TABLET B.I.D
  2. LANSOPRAZOLE. [Suspect]
     Active Substance: LANSOPRAZOLE
     Indication: PERICARDITIS
     Dosage: 30 MG CAPSULE B.I.D.
  3. COLCHICINE. [Concomitant]
     Active Substance: COLCHICINE
     Indication: PERICARDITIS
     Dosage: 0.5 MG TABLETS T.I.D.,

REACTIONS (1)
  - Hyponatraemia [Recovered/Resolved]
